FAERS Safety Report 5092593-9 (Version None)
Quarter: 2006Q3

REPORT INFORMATION
  Report Type: 
  Country: None (occurrence: None)
  Receive Date: 20060727
  Receipt Date: 20060612
  Transmission Date: 20061208
  Serious: Yes (Other)
  Sender: FDA-Public Use
  Company Number: 2006075755

PATIENT
  Age: 83 Year
  Sex: Female
  Weight: 74.8435 kg

DRUGS (5)
  1. LYRICA [Suspect]
     Indication: SPINAL COLUMN STENOSIS
     Dosage: 50 MG (50 MG,1 IN 1 D)
     Dates: start: 20060425, end: 20060529
  2. DIOVAN HCT [Concomitant]
  3. ZOCOR [Concomitant]
  4. XALATAN [Concomitant]
  5. VITAMINS (VITAMINS) [Concomitant]

REACTIONS (2)
  - DIZZINESS [None]
  - OEDEMA PERIPHERAL [None]
